FAERS Safety Report 9158008 (Version 1)
Quarter: 2013Q1

REPORT INFORMATION
  Report Type: Spontaneous
  Country: US (occurrence: US)
  Receive Date: 20130312
  Receipt Date: 20130312
  Transmission Date: 20140127
  Serious: Yes (Hospitalization)
  Sender: FDA-Public Use
  Company Number: US-GLAXOSMITHKLINE-B0873925A

PATIENT
  Age: 12 Year
  Sex: Male

DRUGS (1)
  1. ORLISTAT [Suspect]
     Indication: HYPERCHYLOMICRONAEMIA
     Dosage: 120MG THREE TIMES PER DAY
     Route: 048

REACTIONS (2)
  - Abdominal pain [Unknown]
  - Vitamin D decreased [Unknown]
